FAERS Safety Report 6479562-9 (Version None)
Quarter: 2009Q4

REPORT INFORMATION
  Report Type: 
  Country: None (occurrence: None)
  Receive Date: 20091207
  Receipt Date: 20091207
  Transmission Date: 20100525
  Serious: Yes (Other)
  Sender: FDA-Public Use
  Company Number: None

PATIENT
  Age: 34 Year
  Sex: Female
  Weight: 45.3597 kg

DRUGS (1)
  1. TOPIRAMATE [Suspect]
     Indication: MIGRAINE
     Dosage: 50MG DAILY PO
     Route: 048
     Dates: start: 20090601

REACTIONS (2)
  - MIGRAINE [None]
  - PRODUCT SUBSTITUTION ISSUE [None]
